FAERS Safety Report 24229067 (Version 1)
Quarter: 2024Q3

REPORT INFORMATION
  Report Type: Spontaneous
  Country: US (occurrence: None)
  Receive Date: 20240819
  Receipt Date: 20240819
  Transmission Date: 20241016
  Serious: Yes (Disabling)
  Sender: Public
  Company Number: None

PATIENT
  Age: 76 Year
  Sex: Male
  Weight: 72 kg

DRUGS (21)
  1. RHOPRESSA [Suspect]
     Active Substance: NETARSUDIL MESYLATE
     Indication: Glaucoma
     Dosage: 1 DROP ATE BEDTIME OOPHTHALMIC ?
     Route: 047
     Dates: start: 20240723, end: 20240817
  2. COREG [Concomitant]
     Active Substance: CARVEDILOL
  3. LOSARTAN [Concomitant]
     Active Substance: LOSARTAN\LOSARTAN POTASSIUM
  4. CITALOPRAM [Concomitant]
     Active Substance: CITALOPRAM\CITALOPRAM HYDROBROMIDE
  5. CRESTOR [Concomitant]
     Active Substance: ROSUVASTATIN CALCIUM
  6. FLOMAX [Concomitant]
     Active Substance: TAMSULOSIN HYDROCHLORIDE
  7. PROSCAR [Concomitant]
     Active Substance: FINASTERIDE
  8. Bromanadine eye drops [Concomitant]
  9. Cosept [Concomitant]
  10. TRAVATAN [Concomitant]
     Active Substance: TRAVOPROST
  11. TRAVATAN [Concomitant]
     Active Substance: TRAVOPROST
  12. ASPIRIN [Concomitant]
     Active Substance: ASPIRIN
  13. CALTRATE [Concomitant]
     Active Substance: CALCIUM CARBONATE
  14. HERBALS\TURMERIC [Concomitant]
     Active Substance: HERBALS\TURMERIC
  15. cinamon [Concomitant]
  16. IRON [Concomitant]
     Active Substance: IRON
  17. Magnasium [Concomitant]
  18. PROBIOTICS NOS [Concomitant]
     Active Substance: PROBIOTICS NOS
  19. flex-seed [Concomitant]
  20. Boswallia exract [Concomitant]
  21. Q_10 [Concomitant]

REACTIONS (3)
  - Ocular discomfort [None]
  - Ocular hyperaemia [None]
  - Vision blurred [None]

NARRATIVE: CASE EVENT DATE: 20240816
